FAERS Safety Report 6380305-8 (Version None)
Quarter: 2009Q3

REPORT INFORMATION
  Report Type: 
  Country: None (occurrence: None)
  Receive Date: 20090923
  Receipt Date: 20090916
  Transmission Date: 20100115
  Serious: Yes (Hospitalization)
  Sender: FDA-Public Use
  Company Number: 384192

PATIENT
  Age: 74 Year
  Sex: Male

DRUGS (9)
  1. CIPROFLOXACIN HYDROCHLORIDE [Suspect]
     Indication: URINARY RETENTION
     Dosage: 500 MG, 2 DAY
  2. CITALOPRAM HYDROBROMIDE [Suspect]
     Indication: ANTIDEPRESSANT THERAPY
     Dosage: 20 MG
  3. FLUOXETINE [Suspect]
     Indication: ANTIDEPRESSANT THERAPY
     Dosage: 20 MG
  4. REBOXETINE [Suspect]
     Indication: ANTIDEPRESSANT THERAPY
     Dosage: 4 MG
  5. ENALAPRIL MALEATE [Concomitant]
  6. ACETYLSALICYLIC ACID [Concomitant]
  7. DIAZEPAM [Concomitant]
  8. SULPIRIDE [Concomitant]
  9. OXYBUTYNIN CHLORIDE [Concomitant]

REACTIONS (10)
  - ABASIA [None]
  - CEREBELLAR INFARCTION [None]
  - CEREBELLAR ISCHAEMIA [None]
  - CHILLS [None]
  - CONFUSIONAL STATE [None]
  - DRUG INTERACTION [None]
  - DYSARTHRIA [None]
  - RESTLESSNESS [None]
  - SEROTONIN SYNDROME [None]
  - TREMOR [None]
